FAERS Safety Report 24660147 (Version 2)
Quarter: 2025Q2

REPORT INFORMATION
  Report Type: Spontaneous
  Country: CA (occurrence: CA)
  Receive Date: 20241125
  Receipt Date: 20250430
  Transmission Date: 20250717
  Serious: Yes (Other)
  Sender: PFIZER
  Company Number: CA-PFIZER INC-202400277407

PATIENT
  Age: 35 Year
  Sex: Male

DRUGS (3)
  1. VELSIPITY [Suspect]
     Active Substance: ETRASIMOD ARGININE
     Indication: Colitis ulcerative
     Dosage: 2 MG, 1X/DAY
     Route: 048
     Dates: start: 20241004
  2. MESALAMINE [Concomitant]
     Active Substance: MESALAMINE
     Dates: start: 202406
  3. PREDNISONE [Concomitant]
     Active Substance: PREDNISONE

REACTIONS (8)
  - Blood iron decreased [Not Recovered/Not Resolved]
  - Headache [Unknown]
  - Vertigo [Unknown]
  - Brain fog [Unknown]
  - Ageusia [Unknown]
  - Parosmia [Not Recovered/Not Resolved]
  - Salivary hypersecretion [Unknown]
  - Drug ineffective [Unknown]

NARRATIVE: CASE EVENT DATE: 20240101
